FAERS Safety Report 24341405 (Version 1)
Quarter: 2024Q3

REPORT INFORMATION
  Report Type: Spontaneous
  Country: TN (occurrence: TN)
  Receive Date: 20240920
  Receipt Date: 20240920
  Transmission Date: 20241016
  Serious: Yes (Other)
  Sender: ACCORD
  Company Number: TN-Accord-446835

PATIENT
  Age: 1 Month

DRUGS (1)
  1. ZOLEDRONIC ACID [Suspect]
     Active Substance: ZOLEDRONIC ACID
     Indication: Hypercalcaemia
     Dosage: (0.025 MG/KG)

REACTIONS (2)
  - Pyrexia [Recovered/Resolved]
  - Neonatal tachycardia [Recovered/Resolved]
